FAERS Safety Report 8311369-X (Version None)
Quarter: 2012Q2

REPORT INFORMATION
  Report Type: 
  Country: None (occurrence: None)
  Receive Date: 20120425
  Receipt Date: 20120418
  Transmission Date: 20120825
  Serious: Yes (Death)
  Sender: FDA-Public Use
  Company Number: CHPA2012US009034

PATIENT
  Age: 5 Year
  Sex: Female
  Weight: 21 kg

DRUGS (2)
  1. DEXTROMETHORPHAN UNKNOWN [Suspect]
     Indication: INFLUENZA LIKE ILLNESS
     Dosage: UNK, UNK
     Route: 048
     Dates: start: 20120201, end: 20120201
  2. CETIRIZINE [Suspect]
     Indication: INFLUENZA LIKE ILLNESS
     Dosage: UNK, UNK
     Route: 048
     Dates: start: 20120201, end: 20120201

REACTIONS (7)
  - ACCIDENTAL OVERDOSE [None]
  - TOXICITY TO VARIOUS AGENTS [None]
  - MUSCLE SPASMS [None]
  - PAIN IN EXTREMITY [None]
  - DRUG LEVEL INCREASED [None]
  - MUSCLE SPASTICITY [None]
  - DRUG LEVEL ABOVE THERAPEUTIC [None]
